FAERS Safety Report 8073886-X (Version None)
Quarter: 2011Q4

REPORT INFORMATION
  Report Type: 
  Country: None (occurrence: None)
  Receive Date: 20111221
  Receipt Date: 20110125
  Transmission Date: 20120403
  Serious: Yes (Life-Threatening)
  Sender: FDA-Public Use
  Company Number: PHHY2010US13436

PATIENT
  Sex: Male
  Weight: 65.8 kg

DRUGS (4)
  1. EXJADE [Suspect]
     Indication: IRON OVERLOAD
     Dosage: 1500 MG, QD, ORAL, 750 MG, QD, ORAL
     Route: 048
     Dates: start: 20091001, end: 20101201
  2. EXJADE [Suspect]
     Indication: APLASTIC ANAEMIA
     Dosage: 1500 MG, QD, ORAL, 750 MG, QD, ORAL
     Route: 048
     Dates: start: 20091001, end: 20101201
  3. EXJADE [Suspect]
     Indication: IRON OVERLOAD
     Dosage: 1500 MG, QD, ORAL, 750 MG, QD, ORAL
     Route: 048
     Dates: start: 20091001, end: 20100215
  4. EXJADE [Suspect]
     Indication: APLASTIC ANAEMIA
     Dosage: 1500 MG, QD, ORAL, 750 MG, QD, ORAL
     Route: 048
     Dates: start: 20091001, end: 20100215

REACTIONS (4)
  - RENAL FAILURE [None]
  - VOMITING [None]
  - NAUSEA [None]
  - DIARRHOEA [None]
